FAERS Safety Report 20516186 (Version 1)
Quarter: 2022Q1

REPORT INFORMATION
  Report Type: Report from Study
  Country: IT (occurrence: IT)
  Receive Date: 20220225
  Receipt Date: 20220225
  Transmission Date: 20220423
  Serious: Yes (Other)
  Sender: FDA-Public Use
  Company Number: None

PATIENT
  Age: 81 Year
  Sex: Male

DRUGS (2)
  1. CARBOPLATIN [Suspect]
     Active Substance: CARBOPLATIN
     Indication: Squamous cell carcinoma
     Dosage: FORM STRENGTH: 10 MG / ML, UNIT DOSE: 130 MG
     Route: 042
     Dates: start: 20211201, end: 20211201
  2. PACLITAXEL [Concomitant]
     Active Substance: PACLITAXEL
     Indication: Squamous cell carcinoma
     Dosage: FORM STRENGTH: 6 MG / ML, UNIT DOSE: 95 MG
     Route: 042
     Dates: start: 20211201, end: 20211201

REACTIONS (2)
  - Infusion site extravasation [Recovered/Resolved]
  - Infusion site erythema [Recovered/Resolved]

NARRATIVE: CASE EVENT DATE: 20211201
